FAERS Safety Report 9935424 (Version 2)
Quarter: 2014Q1

REPORT INFORMATION
  Report Type: Spontaneous
  Country: US (occurrence: US)
  Receive Date: 20140228
  Receipt Date: 20140319
  Transmission Date: 20141002
  Serious: No
  Sender: FDA-Public Use
  Company Number: US-PFIZER INC-2014053200

PATIENT
  Age: 61 Year
  Sex: Male

DRUGS (4)
  1. VIAGRA [Suspect]
     Indication: ERECTILE DYSFUNCTION
     Dosage: UNK
  2. VIAGRA [Suspect]
     Dosage: 50 MG, UNK
     Dates: start: 2013, end: 2013
  3. VIAGRA [Suspect]
     Dosage: 100 MG, UNK
     Dates: start: 2013, end: 2013
  4. VIAGRA [Suspect]
     Dosage: 50 MG, UNK
     Dates: start: 2013

REACTIONS (4)
  - Product quality issue [Unknown]
  - Drug ineffective [Unknown]
  - Flushing [Recovered/Resolved]
  - Sinus congestion [Recovered/Resolved]
